FAERS Safety Report 5508782-2 (Version None)
Quarter: 2007Q4

REPORT INFORMATION
  Report Type: 
  Country: None (occurrence: None)
  Receive Date: 20071107
  Receipt Date: 20071030
  Transmission Date: 20080405
  Serious: Yes (Death)
  Sender: FDA-Public Use
  Company Number: B0492666A

PATIENT
  Age: 19 Year
  Sex: Female

DRUGS (8)
  1. AMOXICILLIN [Suspect]
     Indication: PYELONEPHRITIS
     Route: 042
  2. AMOXICILLIN + CLAVULANATE POTASSIUM [Suspect]
     Indication: PYELONEPHRITIS
     Route: 065
  3. GENTAMICIN [Suspect]
     Route: 065
  4. DOPAMINE HCL [Suspect]
     Route: 065
  5. NORADRENALINE [Suspect]
     Route: 065
  6. COLLOIDAL PLASMA EXPANDER [Suspect]
     Route: 065
  7. OXYTOCIN [Suspect]
     Route: 065
  8. SULPROSTONE [Suspect]
     Route: 065

REACTIONS (16)
  - ABDOMINAL PAIN [None]
  - ACUTE RESPIRATORY DISTRESS SYNDROME [None]
  - ANAEMIA [None]
  - CHILLS [None]
  - CONDITION AGGRAVATED [None]
  - DISSEMINATED INTRAVASCULAR COAGULATION [None]
  - DRUG INEFFECTIVE [None]
  - HAEMODYNAMIC INSTABILITY [None]
  - MULTI-ORGAN FAILURE [None]
  - PULMONARY OEDEMA [None]
  - PYELONEPHRITIS [None]
  - PYREXIA [None]
  - RESPIRATORY GAS EXCHANGE DISORDER [None]
  - SEPTIC SHOCK [None]
  - STILLBIRTH [None]
  - UROSEPSIS [None]
